FAERS Safety Report 10155745 (Version 1)
Quarter: 2014Q2

REPORT INFORMATION
  Report Type: Spontaneous
  Country: DE (occurrence: DE)
  Receive Date: 20140506
  Receipt Date: 20140506
  Transmission Date: 20141212
  Serious: Yes (Other)
  Sender: FDA-Public Use
  Company Number: DE-TEVA-478844GER

PATIENT
  Sex: Male
  Weight: 121 kg

DRUGS (14)
  1. QUETIAPIN ABZ 50 MG RETARDTABLETTEN [Suspect]
     Indication: BIPOLAR DISORDER
     Dosage: 50 MILLIGRAM DAILY;
     Route: 048
     Dates: start: 20140205
  2. QUETIAPIN ABZ 50 MG RETARDTABLETTEN [Interacting]
     Dosage: 475 MILLIGRAM DAILY;
     Route: 048
     Dates: start: 2011
  3. QUETIAPIN ABZ 50 MG RETARDTABLETTEN [Interacting]
     Dosage: 100 MILLIGRAM DAILY;
     Route: 048
     Dates: start: 2012
  4. QUETIAPIN ABZ 50 MG RETARDTABLETTEN [Interacting]
     Dosage: 150 MILLIGRAM DAILY;
     Route: 048
  5. QUETIAPIN ABZ 50 MG RETARDTABLETTEN [Interacting]
     Dosage: 75 MILLIGRAM DAILY;
     Route: 048
  6. QUETIAPIN ABZ 50 MG RETARDTABLETTEN [Interacting]
     Dosage: 62.5 MILLIGRAM DAILY;
     Route: 048
  7. QUETIAPIN HEXAL 25 MG FILMTABLETTEN [Interacting]
     Indication: BIPOLAR DISORDER
     Dosage: 25 MILLIGRAM DAILY;
     Route: 048
     Dates: start: 20140205
  8. QUILONORM RETARD 450 MG RETARDTABLETTEN [Interacting]
     Indication: BIPOLAR DISORDER
     Dosage: 450 MILLIGRAM DAILY;
     Route: 048
     Dates: start: 201312
  9. QUILONORM RETARD 450 MG RETARDTABLETTEN [Interacting]
     Dosage: 225 MILLIGRAM DAILY;
     Route: 048
     Dates: start: 201404
  10. QUILONORM RETARD 450 MG RETARDTABLETTEN [Interacting]
     Dosage: 675 MILLIGRAM DAILY;
     Route: 048
     Dates: end: 201312
  11. QUILONORM RETARD 450 MG RETARDTABLETTEN [Interacting]
     Dosage: 337.5 MILLIGRAM DAILY;
     Route: 048
  12. MCP HEXAL 10 MG TABLETTEN [Interacting]
     Indication: DYSPHAGIA
     Route: 048
     Dates: start: 201311
  13. PANTOPRAZOL HEUMANN 20 MG MAGENSAFTRESISTENTE TABLETTEN [Interacting]
     Indication: DYSPHAGIA
     Dosage: 40 MILLIGRAM DAILY;
     Route: 048
     Dates: start: 201401
  14. PANTOPRAZOL HEUMANN 20 MG MAGENSAFTRESISTENTE TABLETTEN [Interacting]
     Dosage: 20 MILLIGRAM DAILY;
     Route: 048
     Dates: start: 201401

REACTIONS (15)
  - Asphyxia [Recovered/Resolved]
  - Aspiration [Recovered/Resolved]
  - Somnolence [Recovered/Resolved]
  - Apathy [Recovered/Resolved]
  - Head discomfort [Recovered/Resolved]
  - Pyrexia [Recovered/Resolved]
  - Chills [Recovered/Resolved]
  - Tremor [Recovered/Resolved]
  - Musculoskeletal stiffness [Recovered/Resolved]
  - Myalgia [Recovered/Resolved]
  - Vomiting [Recovered/Resolved]
  - Dyspnoea [Recovered/Resolved]
  - Dysphagia [Not Recovered/Not Resolved]
  - Weight increased [Not Recovered/Not Resolved]
  - Drug interaction [Unknown]
